FAERS Safety Report 4269024-1 (Version None)
Quarter: 2004Q1

REPORT INFORMATION
  Report Type: 
  Country: None (occurrence: None)
  Receive Date: 20040112
  Receipt Date: 20040112
  Transmission Date: 20041129
  Serious: Yes (Disabling)
  Sender: FDA-Public Use
  Company Number: None

PATIENT
  Age: 42 Year
  Sex: Female
  Weight: 65.7716 kg

DRUGS (2)
  1. PAXIL CR [Suspect]
     Indication: STRESS SYMPTOMS
     Dosage: DAILY ORAL
     Route: 048
     Dates: start: 20030117, end: 20030601
  2. PAXIL CR [Suspect]
     Dosage: DAILY ORAL
     Route: 048
     Dates: start: 20030601, end: 20031213

REACTIONS (18)
  - ARTHROPATHY [None]
  - BACK PAIN [None]
  - BRUXISM [None]
  - DIARRHOEA [None]
  - DIZZINESS [None]
  - DRUG WITHDRAWAL SYNDROME [None]
  - DYSPNOEA [None]
  - EMOTIONAL DISORDER [None]
  - FEELING ABNORMAL [None]
  - HEADACHE [None]
  - HYPERACUSIS [None]
  - INTERVERTEBRAL DISC PROTRUSION [None]
  - IRRITABILITY [None]
  - NAUSEA [None]
  - NIGHT SWEATS [None]
  - PAIN [None]
  - TINNITUS [None]
  - VISION BLURRED [None]
